FAERS Safety Report 13693950 (Version 1)
Quarter: 2017Q2

REPORT INFORMATION
  Report Type: Spontaneous
  Country: US (occurrence: US)
  Receive Date: 20170627
  Receipt Date: 20170627
  Transmission Date: 20170830
  Serious: No
  Sender: FDA-Public Use
  Company Number: None

PATIENT
  Age: 62 Year
  Sex: Male
  Weight: 77.18 kg

DRUGS (1)
  1. DENOSUMAB [Suspect]
     Active Substance: DENOSUMAB
     Indication: OSTEOPOROSIS
     Dosage: 60MG Q6MO SUBQ
     Route: 058
     Dates: start: 20161222

REACTIONS (5)
  - Fatigue [None]
  - Infection [None]
  - Headache [None]
  - Neck pain [None]
  - Urinary tract infection [None]

NARRATIVE: CASE EVENT DATE: 20170515
